FAERS Safety Report 9568926 (Version 2)
Quarter: 2015Q3

REPORT INFORMATION
  Report Type: Spontaneous
  Country: US (occurrence: US)
  Receive Date: 20130930
  Receipt Date: 20150724
  Transmission Date: 20151125
  Serious: Yes (Other)
  Sender: FDA-Public Use
  Company Number: US-AMGEN-USASP2013060273

PATIENT
  Age: 52 Year
  Sex: Female

DRUGS (1)
  1. ENBREL [Suspect]
     Active Substance: ETANERCEPT
     Indication: RHEUMATOID ARTHRITIS
     Dosage: UNK UNK, WEEKLY
     Route: 065
     Dates: start: 20130707, end: 20130818

REACTIONS (12)
  - Vulvovaginal mycotic infection [Recovered/Resolved]
  - Malignant melanoma [Recovered/Resolved]
  - Injection site bruising [Recovered/Resolved]
  - Injection site inflammation [Recovered/Resolved]
  - Myalgia [Recovered/Resolved]
  - Rash pruritic [Recovered/Resolved]
  - Injection site pain [Unknown]
  - Influenza [Unknown]
  - Scar [Recovered/Resolved]
  - Feeling abnormal [Unknown]
  - Fatigue [Recovered/Resolved]
  - Injection site reaction [Unknown]

NARRATIVE: CASE EVENT DATE: 2013
